FAERS Safety Report 13807925 (Version 4)
Quarter: 2018Q1

REPORT INFORMATION
  Report Type: Report from Study
  Country: US (occurrence: US)
  Receive Date: 20170728
  Receipt Date: 20180125
  Transmission Date: 20180508
  Serious: No
  Sender: FDA-Public Use
  Company Number: US-AMGEN-USASL2017060219

PATIENT
  Age: 73 Year
  Sex: Male

DRUGS (2)
  1. ZETIA [Concomitant]
     Active Substance: EZETIMIBE
  2. REPATHA [Suspect]
     Active Substance: EVOLOCUMAB
     Indication: DEVICE OCCLUSION
     Dosage: 140 MG, Q2WK
     Route: 065
     Dates: start: 2015

REACTIONS (2)
  - Throat tightness [Unknown]
  - Muscle spasms [Recovering/Resolving]
